FAERS Safety Report 17056334 (Version 3)
Quarter: 2019Q4

REPORT INFORMATION
  Report Type: Spontaneous
  Country: JP (occurrence: JP)
  Receive Date: 20191121
  Receipt Date: 20191226
  Transmission Date: 20200122
  Serious: Yes (Other)
  Sender: FDA-Public Use
  Company Number: JP-PFIZER INC-2019503259

PATIENT
  Age: 9 Decade
  Sex: Female

DRUGS (1)
  1. CELECOX [Suspect]
     Active Substance: CELECOXIB
     Indication: BACK PAIN
     Dosage: 100 MG, 2X/DAY (IN THE MORNING AND EVENING)
     Route: 048
     Dates: start: 20130312

REACTIONS (2)
  - Seizure [Unknown]
  - Myocardial infarction [Unknown]
